FAERS Safety Report 24540044 (Version 1)
Quarter: 2024Q4

REPORT INFORMATION
  Report Type: Spontaneous
  Country: US (occurrence: None)
  Receive Date: 20241022
  Receipt Date: 20241022
  Transmission Date: 20250114
  Serious: Yes (Other)
  Sender: Public
  Company Number: None

PATIENT
  Age: 43 Year
  Sex: Female
  Weight: 63 kg

DRUGS (2)
  1. TAMOXIFEN [Suspect]
     Active Substance: TAMOXIFEN
     Indication: Breast cancer
     Dates: start: 20240601, end: 20241019
  2. TAMOXIFEN [Suspect]
     Active Substance: TAMOXIFEN
     Indication: Prophylaxis

REACTIONS (7)
  - Hypoacusis [None]
  - Dizziness [None]
  - Ear discomfort [None]
  - Tinnitus [None]
  - Product label issue [None]
  - Oophorectomy [None]
  - Therapy interrupted [None]

NARRATIVE: CASE EVENT DATE: 20241022
